FAERS Safety Report 24890453 (Version 2)
Quarter: 2025Q2

REPORT INFORMATION
  Report Type: Spontaneous
  Country: CA (occurrence: CA)
  Receive Date: 20250127
  Receipt Date: 20250409
  Transmission Date: 20250717
  Serious: Yes (Other)
  Sender: CSL BEHRING
  Company Number: CA-BEH-2025192505

PATIENT
  Age: 79 Year
  Sex: Female

DRUGS (2)
  1. FIBRINOGEN HUMAN [Suspect]
     Active Substance: FIBRINOGEN HUMAN
     Indication: Tissue sealing
     Route: 061
  2. FIBRINOGEN HUMAN [Suspect]
     Active Substance: FIBRINOGEN HUMAN
     Indication: Off label use

REACTIONS (4)
  - Cataract [Unknown]
  - Eye operation [Unknown]
  - Off label use [Unknown]
  - Product use in unapproved indication [Unknown]
